FAERS Safety Report 9944168 (Version 1)
Quarter: 2014Q1

REPORT INFORMATION
  Report Type: Report from Study
  Country: US (occurrence: US)
  Receive Date: 20140303
  Receipt Date: 20140303
  Transmission Date: 20141002
  Serious: No
  Sender: FDA-Public Use
  Company Number: US-ABBVIE-13P-163-1053205-00

PATIENT
  Age: 53 Year
  Sex: Female

DRUGS (5)
  1. HUMIRA [Suspect]
     Indication: PSORIASIS
  2. METOPROLOL [Concomitant]
     Indication: HEART RATE IRREGULAR
     Dosage: IN THE AM AND IN THE PM
  3. ATORVASTATIN [Concomitant]
     Indication: BLOOD CHOLESTEROL
     Dosage: 40 MG DAILY
  4. XANAX [Concomitant]
     Indication: ANXIETY
  5. BUPROPION [Concomitant]
     Indication: DEPRESSION

REACTIONS (3)
  - Adjustment disorder [Unknown]
  - Anxiety [Unknown]
  - Depression [Unknown]
